FAERS Safety Report 4293646-5 (Version None)
Quarter: 2004Q1

REPORT INFORMATION
  Report Type: 
  Country: None (occurrence: None)
  Receive Date: 20040212
  Receipt Date: 20031204
  Transmission Date: 20041129
  Serious: Yes (Disabling)
  Sender: FDA-Public Use
  Company Number: PHBS2003NZ13647

PATIENT
  Age: 37 Year
  Sex: Male
  Weight: 121 kg

DRUGS (7)
  1. CLOZARIL [Suspect]
     Indication: SCHIZOPHRENIA
     Dosage: 500 MG/D
     Route: 048
     Dates: start: 20020901
  2. CLOZARIL [Suspect]
     Route: 048
     Dates: start: 20040205
  3. VALPROATE SODIUM [Concomitant]
     Dosage: 600 MG, BID
     Route: 065
     Dates: start: 20030828
  4. RANITIDINE [Concomitant]
     Route: 065
  5. INSULIN [Concomitant]
     Route: 065
  6. SIMVASTATIN [Concomitant]
     Route: 065
  7. QUETIAPINE [Concomitant]
     Dosage: UNK, UNK
     Route: 065

REACTIONS (12)
  - COUGH [None]
  - DIABETES MELLITUS NON-INSULIN-DEPENDENT [None]
  - DYSPEPSIA [None]
  - DYSPNOEA [None]
  - FATIGUE [None]
  - HYPERGLYCAEMIA [None]
  - HYPERTRIGLYCERIDAEMIA [None]
  - LETHARGY [None]
  - METABOLIC SYNDROME [None]
  - MUSCLE CRAMP [None]
  - PALPITATIONS [None]
  - WEIGHT INCREASED [None]
